FAERS Safety Report 18156612 (Version 1)
Quarter: 2020Q3

REPORT INFORMATION
  Report Type: Spontaneous
  Country: US (occurrence: US)
  Receive Date: 20200816
  Receipt Date: 20200816
  Transmission Date: 20201103
  Serious: No
  Sender: FDA-Public Use
  Company Number: None

PATIENT
  Age: 36 Year
  Sex: Male
  Weight: 112.5 kg

DRUGS (5)
  1. ALPRAZOLAM XR [Suspect]
     Active Substance: ALPRAZOLAM
     Indication: ANXIETY
     Route: 048
  2. VITAMIN D [Concomitant]
     Active Substance: VITAMIN D NOS
  3. ATENOLOL. [Suspect]
     Active Substance: ATENOLOL
     Indication: BLOOD PRESSURE INCREASED
     Route: 048
  4. FENOFIBRATE. [Concomitant]
     Active Substance: FENOFIBRATE
  5. SERTRALINE. [Concomitant]

REACTIONS (1)
  - Bundle branch block right [None]

NARRATIVE: CASE EVENT DATE: 20200804
